FAERS Safety Report 7971018 (Version 13)
Quarter: 2013Q4

REPORT INFORMATION
  Report Type: Spontaneous
  Country: US (occurrence: US)
  Receive Date: 20110602
  Receipt Date: 20131204
  Transmission Date: 20140711
  Serious: Yes (Hospitalization, Disabling, Other)
  Sender: FDA-Public Use
  Company Number: US-ASTRAZENECA-2011SE32237

PATIENT
  Age: 58 Year
  Sex: Female
  Weight: 90.7 kg

DRUGS (24)
  1. NEXIUM [Suspect]
     Indication: GASTROOESOPHAGEAL REFLUX DISEASE
     Route: 048
     Dates: start: 20070618
  2. NEXIUM [Suspect]
     Indication: GASTROOESOPHAGEAL REFLUX DISEASE
     Route: 048
     Dates: start: 20080829
  3. NEXIUM [Suspect]
     Indication: GASTROOESOPHAGEAL REFLUX DISEASE
     Route: 048
     Dates: start: 20090217
  4. OTC TUMS [Concomitant]
     Indication: GASTROOESOPHAGEAL REFLUX DISEASE
     Dates: start: 1969, end: 200706
  5. ALKA SELTZER [Concomitant]
     Indication: GASTROOESOPHAGEAL REFLUX DISEASE
     Dates: start: 1969, end: 200706
  6. MILK OF MAGNESIUM [Concomitant]
     Indication: GASTROOESOPHAGEAL REFLUX DISEASE
     Dates: start: 1969, end: 200706
  7. PEPTO BISMOL [Concomitant]
     Indication: GASTROOESOPHAGEAL REFLUX DISEASE
     Dates: start: 1969, end: 200706
  8. ROLAIDS [Concomitant]
     Indication: GASTROOESOPHAGEAL REFLUX DISEASE
     Dates: start: 1969, end: 200706
  9. NADOLOL [Concomitant]
     Indication: HEART RATE IRREGULAR
     Dates: start: 20081006
  10. NADOLOL [Concomitant]
     Indication: HEART RATE IRREGULAR
     Dates: start: 20090217
  11. SERTRALINE/ZOLOFT [Concomitant]
     Indication: DEPRESSION
     Dates: start: 2006
  12. SERTRALINE/ZOLOFT [Concomitant]
     Indication: DEPRESSION
     Dates: start: 20080829
  13. SERTRALINE/ZOLOFT [Concomitant]
     Indication: DEPRESSION
     Dates: start: 20090722
  14. B 12 [Concomitant]
     Indication: METABOLIC DISORDER
  15. GINSENG [Concomitant]
     Indication: ASTHENIA
  16. DARVOCET N [Concomitant]
     Indication: FRACTURE
     Dates: start: 20090418
  17. CYCLOBENZAPR [Concomitant]
     Dates: start: 20081022
  18. CYCLOBENZAPR [Concomitant]
     Dates: start: 20090217
  19. METHYLPREDNISOLON [Concomitant]
     Dates: start: 20090217
  20. VICODIN [Concomitant]
     Indication: PAIN
     Dosage: 5-500 MG, 1 TAB EVERY 4-6 HRS AS NEEDED
  21. VOLTAREN [Concomitant]
  22. MOTRIN [Concomitant]
     Indication: PAIN
     Dosage: 1 TAB PO Q 6-8 HRS PRN
     Route: 048
     Dates: start: 20130214
  23. TRAMADOL HCL [Concomitant]
     Dates: start: 20100922
  24. BACLOFEN [Concomitant]
     Dates: start: 20110812

REACTIONS (17)
  - Sciatica [Unknown]
  - Pain [Unknown]
  - Ankle fracture [Unknown]
  - Intervertebral disc displacement [Unknown]
  - Cervical spinal stenosis [Unknown]
  - Radiculopathy [Unknown]
  - Lower limb fracture [Unknown]
  - Fibula fracture [Unknown]
  - Fall [Unknown]
  - Tibia fracture [Unknown]
  - Intervertebral disc protrusion [Unknown]
  - Pain in extremity [Unknown]
  - Ligament sprain [Unknown]
  - Arthritis [Unknown]
  - Intervertebral disc degeneration [Unknown]
  - Contusion [Unknown]
  - Osteoporosis [Unknown]
